FAERS Safety Report 5647058-X (Version None)
Quarter: 2008Q1

REPORT INFORMATION
  Report Type: 
  Country: None (occurrence: None)
  Receive Date: 20080303
  Receipt Date: 20080222
  Transmission Date: 20080703
  Serious: Yes (Hospitalization, Other)
  Sender: FDA-Public Use
  Company Number: GB-JNJFOC-20080205572

PATIENT
  Sex: Female
  Weight: 84 kg

DRUGS (7)
  1. INFLIXIMAB [Suspect]
     Indication: RHEUMATOID ARTHRITIS
     Route: 042
  2. METHOTREXATE [Concomitant]
  3. PREDNISOLONE [Concomitant]
  4. FOLIC ACID [Concomitant]
  5. LOSEC I.V. [Concomitant]
  6. NAPROSYN [Concomitant]
  7. ALENDRONATE SODIUM [Concomitant]

REACTIONS (2)
  - JAUNDICE [None]
  - LIVER DISORDER [None]
